FAERS Safety Report 5139321-6 (Version None)
Quarter: 2006Q4

REPORT INFORMATION
  Report Type: 
  Country: None (occurrence: None)
  Receive Date: 20061024
  Receipt Date: 20061018
  Transmission Date: 20070319
  Serious: Yes (Death, Hospitalization, Disabling)
  Sender: FDA-Public Use
  Company Number: 163-20785-06081219

PATIENT
  Age: 77 Year
  Sex: Female
  Weight: 63.05 kg

DRUGS (4)
  1. THALOMID [Suspect]
     Indication: BEHCET'S SYNDROME
     Dosage: SEE IMAGE
     Route: 048
     Dates: start: 20050920, end: 20060906
  2. THALOMID [Suspect]
     Indication: NEURALGIA
     Dosage: SEE IMAGE
     Route: 048
     Dates: start: 20050920, end: 20060906
  3. THALOMID [Suspect]
     Indication: BEHCET'S SYNDROME
     Dosage: SEE IMAGE
     Route: 048
     Dates: start: 20060101
  4. THALOMID [Suspect]
     Indication: NEURALGIA
     Dosage: SEE IMAGE
     Route: 048
     Dates: start: 20060101

REACTIONS (6)
  - BEHCET'S SYNDROME [None]
  - COAGULOPATHY [None]
  - CONDITION AGGRAVATED [None]
  - GASTROOESOPHAGEAL REFLUX DISEASE [None]
  - NEUROPATHY PERIPHERAL [None]
  - PULMONARY EMBOLISM [None]
